FAERS Safety Report 4289415-2 (Version None)
Quarter: 2004Q1

REPORT INFORMATION
  Report Type: 
  Country: None (occurrence: None)
  Receive Date: 20040126
  Receipt Date: 20031003
  Transmission Date: 20041129
  Serious: No
  Sender: FDA-Public Use
  Company Number: USA030330530

PATIENT
  Age: 73 Year
  Sex: Female
  Weight: 47 kg

DRUGS (4)
  1. FORTEO [Suspect]
     Indication: OSTEOPOROSIS
     Dosage: 20 UG/DAY
     Dates: start: 20030227
  2. ADVAIR DISKUS 100/50 [Concomitant]
  3. TAMOXIFEN [Concomitant]
  4. VITAMIN D [Concomitant]

REACTIONS (3)
  - HEADACHE [None]
  - INJECTION SITE ERYTHEMA [None]
  - LOOSE STOOLS [None]
